FAERS Safety Report 6249800-6 (Version None)
Quarter: 2009Q2

REPORT INFORMATION
  Report Type: 
  Country: None (occurrence: None)
  Receive Date: 20090629
  Receipt Date: 20090617
  Transmission Date: 20091009
  Serious: Yes (Other)
  Sender: FDA-Public Use
  Company Number: PHHY2009AU24299

PATIENT
  Sex: Male

DRUGS (5)
  1. CLOZARIL [Suspect]
     Dosage: UNK
     Dates: start: 20090307
  2. CLOZARIL [Suspect]
     Dosage: 175 UNK, UNK
  3. CLOZARIL [Suspect]
     Dosage: 225 UNK, UNK
  4. CLOZARIL [Suspect]
     Dosage: 300 UNK, UNK
  5. CLOZARIL [Suspect]
     Dosage: 350 UNK, UNK
     Dates: start: 20090407, end: 20090613

REACTIONS (2)
  - CONVULSION [None]
  - ECHOCARDIOGRAM ABNORMAL [None]
